FAERS Safety Report 11203600 (Version 2)
Quarter: 2015Q2

REPORT INFORMATION
  Report Type: Report from Study
  Country: IL (occurrence: IL)
  Receive Date: 20150619
  Receipt Date: 20150630
  Transmission Date: 20150821
  Serious: Yes (Death, Hospitalization)
  Sender: FDA-Public Use
  Company Number: IL-MERCK-1411ISR004151

PATIENT
  Age: 86 Year
  Sex: Male
  Weight: 68 kg

DRUGS (35)
  1. PEMBROLIZUMAB. [Suspect]
     Active Substance: PEMBROLIZUMAB
     Dosage: UNK, Q3W
     Route: 042
     Dates: start: 20131105, end: 20140820
  2. CARTIA (ASPIRIN) [Concomitant]
     Active Substance: ASPIRIN
     Indication: MYOCARDIAL ISCHAEMIA
     Dosage: 100 MG, QD
     Route: 048
     Dates: start: 199709
  3. PREDNISONE. [Concomitant]
     Active Substance: PREDNISONE
     Indication: DIARRHOEA
     Dosage: 10 MG, QD
     Route: 048
     Dates: start: 20140927, end: 20140929
  4. MAGNESIUM (UNSPECIFIED) [Concomitant]
     Active Substance: MAGNESIUM
     Indication: PRODUCT USED FOR UNKNOWN INDICATION
     Dosage: 200 MG, QD
     Route: 048
     Dates: start: 20140926
  5. PLAVIX [Concomitant]
     Active Substance: CLOPIDOGREL BISULFATE
     Indication: MYOCARDIAL INFARCTION
     Dosage: 75 MG, QD
     Route: 048
     Dates: start: 20100504
  6. XATRAL [Concomitant]
     Active Substance: ALFUZOSIN
     Indication: BENIGN PROSTATIC HYPERPLASIA
     Dosage: 10 MG, QD
     Route: 048
     Dates: start: 20130509
  7. U LACTIN [Concomitant]
     Indication: PRURITUS
     Dosage: 1 G, QD
     Route: 061
     Dates: start: 20140129
  8. SLOW-K [Concomitant]
     Active Substance: POTASSIUM CHLORIDE
     Indication: DIARRHOEA
     Dosage: 0.6 G, QD
     Route: 048
     Dates: start: 20140801, end: 20140925
  9. GLUBEN [Concomitant]
     Indication: TYPE 2 DIABETES MELLITUS
     Dosage: DAILY DOSE 5 MG, PRN
     Route: 048
     Dates: start: 200803
  10. LOSEC (OMEPRAZOLE) [Concomitant]
     Indication: PROPHYLAXIS
     Dosage: 20 MG, QD. FORMULATION: PILL.
     Route: 048
     Dates: start: 20131022
  11. PREDNISONE. [Concomitant]
     Active Substance: PREDNISONE
     Indication: DIARRHOEA
     Dosage: 5 MG, QD
     Route: 048
     Dates: start: 20140926, end: 20140927
  12. LUMIGAN [Concomitant]
     Active Substance: BIMATOPROST
     Indication: PROPHYLAXIS
  13. NOVO-NORM [Concomitant]
     Active Substance: REPAGLINIDE
     Indication: DIABETES MELLITUS
     Dosage: 0.5 MG, QD
     Route: 048
     Dates: start: 20140926
  14. BONDORMIN [Concomitant]
     Indication: SLEEP DISORDER
     Dosage: 0.25 MG, QD
     Route: 048
     Dates: start: 20140802, end: 20141030
  15. PEMBROLIZUMAB. [Suspect]
     Active Substance: PEMBROLIZUMAB
     Dosage: UNK, Q3W
     Route: 042
     Dates: start: 20140910, end: 20140910
  16. ROCEPHIN [Concomitant]
     Active Substance: CEFTRIAXONE SODIUM
     Indication: PNEUMONIA
     Dosage: 1 G, QD. FORMULATION: AMPULE
     Route: 042
     Dates: start: 20140926, end: 20141001
  17. DIMITONE [Concomitant]
     Indication: MYOCARDIAL ISCHAEMIA
     Dosage: TOTAL DAILY DOSE: 6.25 MG
     Route: 048
     Dates: start: 199709
  18. CLONEX (CLONAZEPAM) [Concomitant]
     Indication: SLEEP DISORDER
     Dosage: 0.5 MG, QD
     Route: 048
     Dates: start: 20130509
  19. PREDNISONE. [Concomitant]
     Active Substance: PREDNISONE
     Indication: DIARRHOEA
     Dosage: 25 MG, QD
     Route: 048
     Dates: start: 20140804, end: 20140926
  20. AUGMENTIN [Concomitant]
     Active Substance: AMOXICILLIN\CLAVULANATE POTASSIUM
     Indication: PNEUMONIA BACTERIAL
     Dosage: 875 MG, BID
     Route: 048
     Dates: start: 20140926, end: 20140929
  21. ACAMOL [Concomitant]
     Active Substance: ACETAMINOPHEN
     Indication: PYREXIA
     Dosage: 500 MG, ONCE
     Route: 048
     Dates: start: 20140927, end: 20140927
  22. VABEN [Concomitant]
     Active Substance: OXAZEPAM
     Indication: PROPHYLAXIS
     Dosage: 5 MG, QD
     Route: 048
     Dates: start: 20140926, end: 20141104
  23. LOSARDEX [Concomitant]
     Indication: HYPERTENSION
     Dosage: 50 MG, QD
     Route: 048
     Dates: start: 201201
  24. PREDNISONE. [Concomitant]
     Active Substance: PREDNISONE
     Indication: DIARRHOEA
     Dosage: 15 MG, QD
     Route: 048
     Dates: start: 20140929, end: 20141025
  25. AZENIL [Concomitant]
     Indication: PNEUMONIA
     Dosage: 500 MG, QD
     Route: 048
     Dates: start: 20140926, end: 20141001
  26. VITAMIN D [Concomitant]
     Active Substance: CHOLECALCIFEROL
     Indication: PRODUCT USED FOR UNKNOWN INDICATION
     Dosage: 400 IU, BID
     Route: 048
     Dates: start: 20140926
  27. STOPIT [Concomitant]
     Indication: DIARRHOEA
     Dosage: 2 MG, QD
     Route: 048
     Dates: start: 20140926, end: 20141029
  28. PEMBROLIZUMAB. [Suspect]
     Active Substance: PEMBROLIZUMAB
     Indication: MALIGNANT MELANOMA
     Dosage: UNK, Q3W
     Route: 042
     Dates: start: 20130526, end: 20131002
  29. FUSID (FUROSEMIDE) [Concomitant]
     Active Substance: FUROSEMIDE
     Indication: MYOCARDIAL ISCHAEMIA
     Dosage: 80 MG, QD
     Route: 048
     Dates: start: 20110810
  30. STOPIT [Concomitant]
     Indication: DIARRHOEA
     Dosage: DAILY DOSE 6 MG, PRN. FORMULATION: PILL
     Route: 048
     Dates: start: 20130823
  31. SLOW-K [Concomitant]
     Active Substance: POTASSIUM CHLORIDE
     Dosage: TOTAL DAILY DOSE: 0.6 MG
     Route: 048
     Dates: start: 20140926, end: 20140927
  32. SLOW-K [Concomitant]
     Active Substance: POTASSIUM CHLORIDE
     Indication: DIARRHOEA
     Dosage: TOTAL DAILY DOSE: 1.2 G, TID
     Route: 048
     Dates: start: 20140927, end: 20140928
  33. COMBIGAN [Concomitant]
     Active Substance: BRIMONIDINE TARTRATE\TIMOLOL MALEATE
     Indication: INTRAOCULAR PRESSURE DECREASED
     Dosage: 2 U, BID. FORMULATION: SOLUTION
     Route: 047
     Dates: start: 20140926
  34. FUSID (FUROSEMIDE) [Concomitant]
     Active Substance: FUROSEMIDE
     Indication: CARDIAC FAILURE CONGESTIVE
     Dosage: 40 MG, BID
     Route: 042
     Dates: start: 20140927, end: 20140930
  35. LUMIGAN [Concomitant]
     Active Substance: BIMATOPROST
     Indication: INTRAOCULAR PRESSURE TEST
     Dosage: 2 U, QD. FORMULATION: SOLUTION
     Route: 047
     Dates: start: 20140926

REACTIONS (2)
  - General physical health deterioration [Fatal]
  - Diarrhoea [Recovered/Resolved]

NARRATIVE: CASE EVENT DATE: 20141006
